FAERS Safety Report 9454438 (Version 2)
Quarter: 2013Q4

REPORT INFORMATION
  Report Type: Spontaneous
  Country: US (occurrence: None)
  Receive Date: 20130808
  Receipt Date: 20131120
  Transmission Date: 20140711
  Serious: Yes (Other)
  Sender: FDA-Public Use
  Company Number: 20130377

PATIENT
  Age: 54 Year
  Sex: Female
  Weight: 106.1 kg

DRUGS (11)
  1. LEVETIRACETAM [Suspect]
     Indication: CONVULSION PROPHYLAXIS
     Dosage: 500-750 MG, INTRAVENOUS
     Dates: start: 20130724, end: 20130729
  2. LEVETIRACETAM [Suspect]
     Indication: CEREBRAL HAEMORRHAGE
     Dosage: 500-750 MG, INTRAVENOUS
     Dates: start: 20130724, end: 20130729
  3. ATIVAN (LORAZEPAM) [Concomitant]
  4. FOSPHENYTOIN SODIUM INJECTION [Concomitant]
  5. NSS [Concomitant]
  6. VERSED [Concomitant]
  7. LEBATALOL [Concomitant]
  8. PROPROFOL [Concomitant]
  9. MIDAZOLAM [Concomitant]
  10. NICARDIPINE [Concomitant]
  11. LEVETIRACETAM [Suspect]

REACTIONS (4)
  - Convulsion [None]
  - Condition aggravated [None]
  - Grand mal convulsion [None]
  - Product quality issue [None]
